FAERS Safety Report 6822091-0 (Version None)
Quarter: 2010Q3

REPORT INFORMATION
  Report Type: 
  Country: None (occurrence: None)
  Receive Date: 20100708
  Receipt Date: 20100628
  Transmission Date: 20110219
  Serious: No
  Sender: FDA-Public Use
  Company Number: US-JNJFOC-20100405205

PATIENT
  Sex: Female
  Weight: 67.59 kg

DRUGS (3)
  1. DURAGESIC-100 [Suspect]
     Indication: BACK INJURY
     Route: 062
  2. DURAGESIC-100 [Suspect]
     Indication: BACK INJURY
     Route: 062
  3. OXYCODONE HCL [Concomitant]
     Indication: BACK PAIN
     Route: 048

REACTIONS (12)
  - BACK PAIN [None]
  - BOWEL MOVEMENT IRREGULARITY [None]
  - DEPRESSION [None]
  - DRUG DISPENSING ERROR [None]
  - DRUG EFFECT INCREASED [None]
  - DRUG INEFFECTIVE [None]
  - LETHARGY [None]
  - MUSCLE SPASMS [None]
  - PRODUCT CONTAMINATION PHYSICAL [None]
  - PRODUCT QUALITY ISSUE [None]
  - SOMNOLENCE [None]
  - WEIGHT DECREASED [None]
